FAERS Safety Report 6243311-X (Version None)
Quarter: 2009Q2

REPORT INFORMATION
  Report Type: 
  Country: None (occurrence: None)
  Receive Date: 20090624
  Receipt Date: 20090616
  Transmission Date: 20091009
  Serious: Yes (Death, Other)
  Sender: FDA-Public Use
  Company Number: PHHY2009GB17233

PATIENT
  Age: 25 Year
  Sex: Male

DRUGS (8)
  1. IMATINIB MESYLATE [Suspect]
     Indication: ACUTE MYELOID LEUKAEMIA
     Dosage: 400 MG, QD
  2. IMATINIB MESYLATE [Suspect]
     Dosage: 400 MG/DAY
  3. IMATINIB MESYLATE [Suspect]
     Dosage: 600 MG/DAY
  4. PREDNISOLONE [Concomitant]
  5. DASATINIB [Concomitant]
  6. CYCLOSPORINE [Concomitant]
  7. METHOTREXATE [Concomitant]
  8. CYCLOPHOSPHAMIDE [Concomitant]

REACTIONS (4)
  - ACUTE MYELOID LEUKAEMIA [None]
  - GRAFT VERSUS HOST DISEASE [None]
  - PHOTOPHERESIS [None]
  - STEM CELL TRANSPLANT [None]
